FAERS Safety Report 5522264-3 (Version None)
Quarter: 2007Q4

REPORT INFORMATION
  Report Type: 
  Country: None (occurrence: None)
  Receive Date: 20071120
  Receipt Date: 20071112
  Transmission Date: 20080405
  Serious: Yes (Death)
  Sender: FDA-Public Use
  Company Number: US-JNJFOC-20070504766

PATIENT
  Sex: Male
  Weight: 113.4 kg

DRUGS (8)
  1. DURAGESIC-100 [Suspect]
     Indication: BACK PAIN
     Route: 062
     Dates: start: 20050425
  2. STEROID [Concomitant]
     Route: 008
  3. AMITRIPTYLINE [Concomitant]
  4. ULTRAM [Concomitant]
  5. LEXAPRO [Concomitant]
  6. XANAX [Concomitant]
  7. NORTRIPTYLINE HCL [Concomitant]
  8. MORPHINE [Concomitant]

REACTIONS (3)
  - ARRHYTHMIA [None]
  - ARTERIOSCLEROSIS CORONARY ARTERY [None]
  - DRUG TOXICITY [None]
